FAERS Safety Report 20750700 (Version 2)
Quarter: 2022Q2

REPORT INFORMATION
  Report Type: Spontaneous
  Country: US (occurrence: US)
  Receive Date: 20220426
  Receipt Date: 20220513
  Transmission Date: 20220721
  Serious: No
  Sender: FDA-Public Use
  Company Number: US-PFIZER INC-202200570238

PATIENT
  Age: 37 Year
  Sex: Female

DRUGS (3)
  1. IBRANCE [Suspect]
     Active Substance: PALBOCICLIB
     Dosage: UNK
     Dates: start: 20220409
  2. IBRANCE [Suspect]
     Active Substance: PALBOCICLIB
     Dosage: 125 MG
     Dates: start: 20220417
  3. LETROZOLE [Suspect]
     Active Substance: LETROZOLE
     Dosage: UNK

REACTIONS (8)
  - Nausea [Unknown]
  - Vomiting [Unknown]
  - Headache [Unknown]
  - Paraesthesia [Unknown]
  - Decreased activity [Unknown]
  - Dizziness [Unknown]
  - Influenza like illness [Recovered/Resolved]
  - Contusion [Recovered/Resolved]
